FAERS Safety Report 11992062 (Version 1)
Quarter: 2016Q1

REPORT INFORMATION
  Report Type: Spontaneous
  Country: US (occurrence: US)
  Receive Date: 20160203
  Receipt Date: 20160203
  Transmission Date: 20160526
  Serious: No
  Sender: FDA-Public Use
  Company Number: US-JNJFOC-20151210457

PATIENT
  Age: 6 Month
  Sex: Female
  Weight: 6.35 kg

DRUGS (1)
  1. INFANTS TYLENOL [Suspect]
     Active Substance: ACETAMINOPHEN
     Indication: PAIN
     Dosage: 1X
     Route: 048
     Dates: start: 20151211

REACTIONS (1)
  - Extra dose administered [Unknown]
